FAERS Safety Report 14019696 (Version 1)
Quarter: 2017Q3

REPORT INFORMATION
  Report Type: Spontaneous
  Country: FR (occurrence: FR)
  Receive Date: 20170928
  Receipt Date: 20170928
  Transmission Date: 20171128
  Serious: Yes (Other)
  Sender: FDA-Public Use
  Company Number: FR-MERCK KGAA-2028033

PATIENT
  Sex: Female

DRUGS (1)
  1. NOVOTHYROX [Suspect]
     Active Substance: LEVOTHYROXINE SODIUM
     Indication: PRODUCT USED FOR UNKNOWN INDICATION
     Dates: start: 201704

REACTIONS (7)
  - Road traffic accident [None]
  - Joint injury [None]
  - Vertigo [None]
  - Fatigue [None]
  - Nausea [None]
  - Alopecia [None]
  - Malaise [None]

NARRATIVE: CASE EVENT DATE: 2017
